FAERS Safety Report 9637756 (Version 2)
Quarter: 2014Q1

REPORT INFORMATION
  Report Type: Spontaneous
  Country: JP (occurrence: JP)
  Receive Date: 20131022
  Receipt Date: 20140106
  Transmission Date: 20141002
  Serious: Yes (Other)
  Sender: FDA-Public Use
  Company Number: JP-JNJFOC-20131011579

PATIENT
  Age: 62 Year
  Sex: Male

DRUGS (2)
  1. ITRIZOLE [Suspect]
     Indication: ONYCHOMYCOSIS
     Route: 048
     Dates: start: 20131008, end: 20131013
  2. LULICON [Concomitant]
     Route: 061
     Dates: start: 20131008

REACTIONS (1)
  - Rash [Unknown]
